FAERS Safety Report 11259308 (Version 21)
Quarter: 2020Q3

REPORT INFORMATION
  Report Type: Report from Study
  Country: CA (occurrence: CA)
  Receive Date: 20150710
  Receipt Date: 20200725
  Transmission Date: 20201102
  Serious: Yes (Death, Hospitalization, Other)
  Sender: FDA-Public Use
  Company Number: PHHY2014CA138066

PATIENT
  Age: 54 Year
  Sex: Female

DRUGS (20)
  1. EXJADE [Suspect]
     Active Substance: DEFERASIROX
     Dosage: 1250 MG, QD
     Route: 048
  2. JADENU [Suspect]
     Active Substance: DEFERASIROX
     Indication: MYELODYSPLASTIC SYNDROME
     Dosage: 1080 MG, QD
     Route: 048
     Dates: start: 201611
  3. VITAMIN D [Concomitant]
     Active Substance: VITAMIN D NOS
     Indication: BLOOD PRESSURE ABNORMAL
     Dosage: UNK
     Route: 065
  4. EXJADE [Suspect]
     Active Substance: DEFERASIROX
     Dosage: 1000 MG,QD
     Route: 048
  5. EXJADE [Suspect]
     Active Substance: DEFERASIROX
     Dosage: 1500 MG, QD
     Route: 048
     Dates: end: 201611
  6. DEXILANT [Concomitant]
     Active Substance: DEXLANSOPRAZOLE
     Indication: PRODUCT USED FOR UNKNOWN INDICATION
     Route: 065
  7. BEE POLLEN [Concomitant]
     Active Substance: BEE POLLEN
     Indication: PRODUCT USED FOR UNKNOWN INDICATION
     Route: 065
  8. POTASSIUM [Concomitant]
     Active Substance: POTASSIUM
     Dosage: 6 DF, QD
     Route: 065
  9. EXJADE [Suspect]
     Active Substance: DEFERASIROX
     Dosage: 500 MG,QD
     Route: 048
     Dates: start: 20141110
  10. EXJADE [Suspect]
     Active Substance: DEFERASIROX
     Dosage: 1500 MG, QD (1000MG AM AND 500 MG PM)
     Route: 048
  11. SPIRONOLACTONE. [Concomitant]
     Active Substance: SPIRONOLACTONE
     Indication: PRODUCT USED FOR UNKNOWN INDICATION
     Dosage: 50 MG, QD
     Route: 065
  12. POTASSIUM [Concomitant]
     Active Substance: POTASSIUM
     Indication: ELECTROLYTE SUBSTITUTION THERAPY
     Dosage: 4 DF, QD
     Route: 065
  13. POTASSIUM [Concomitant]
     Active Substance: POTASSIUM
     Indication: BLOOD PRESSURE MEASUREMENT
     Dosage: 5 DF, QD
     Route: 065
  14. POTASSIUM [Concomitant]
     Active Substance: POTASSIUM
     Dosage: 5 DF, QD
     Route: 065
  15. JADENU [Suspect]
     Active Substance: DEFERASIROX
     Dosage: 360 MG, UNK
     Route: 048
     Dates: start: 201612
  16. POTASSIUM [Concomitant]
     Active Substance: POTASSIUM
     Indication: BLOOD POTASSIUM ABNORMAL
     Dosage: 6 DF, QD
     Route: 065
  17. POTASSIUM [Concomitant]
     Active Substance: POTASSIUM
     Dosage: 6 DF, QD
     Route: 065
  18. SYNTHROID [Concomitant]
     Active Substance: LEVOTHYROXINE SODIUM
     Indication: BLOOD PRESSURE ABNORMAL
     Route: 065
  19. ZANTAC [Concomitant]
     Active Substance: RANITIDINE HYDROCHLORIDE
     Indication: PRODUCT USED FOR UNKNOWN INDICATION
     Dosage: UNK UNK, BID
     Route: 065
  20. EXJADE [Suspect]
     Active Substance: DEFERASIROX
     Indication: MYELODYSPLASTIC SYNDROME
     Dosage: 1500 MG, QD
     Route: 048
     Dates: start: 20141017

REACTIONS (46)
  - Viral infection [Recovered/Resolved]
  - Diarrhoea [Recovered/Resolved]
  - Immunodeficiency [Unknown]
  - Urinary tract infection [Unknown]
  - Pollakiuria [Unknown]
  - Malaise [Unknown]
  - Hip fracture [Unknown]
  - Nephrolithiasis [Unknown]
  - Malignant peritoneal neoplasm [Unknown]
  - Lung carcinoma cell type unspecified recurrent [Unknown]
  - Constipation [Unknown]
  - Fatigue [Unknown]
  - Death [Fatal]
  - Bronchitis [Unknown]
  - Back pain [Unknown]
  - Anxiety [Unknown]
  - Clostridium difficile infection [Unknown]
  - Pleuritic pain [Recovered/Resolved]
  - Renal pain [Unknown]
  - Pain [Unknown]
  - Blood pressure systolic increased [Unknown]
  - Bone lesion [Unknown]
  - Chromaturia [Unknown]
  - Insomnia [Unknown]
  - Hepatic pain [Unknown]
  - Bacterial infection [Unknown]
  - Spinal fracture [Unknown]
  - Malignant melanoma [Unknown]
  - Blood potassium decreased [Unknown]
  - Weight increased [Unknown]
  - Back injury [Unknown]
  - Osteoporosis [Unknown]
  - Blood potassium abnormal [Unknown]
  - Abdominal pain [Unknown]
  - Abdominal pain upper [Unknown]
  - Fall [Unknown]
  - Pleural effusion [Unknown]
  - Haemoglobin decreased [Unknown]
  - Gastric ulcer [Unknown]
  - Decreased appetite [Unknown]
  - Muscle strain [Unknown]
  - Nasopharyngitis [Unknown]
  - Heart rate increased [Unknown]
  - Dysuria [Unknown]
  - Dyspepsia [Unknown]
  - Blood creatinine increased [Unknown]

NARRATIVE: CASE EVENT DATE: 20141017
